FAERS Safety Report 6531353-6 (Version None)
Quarter: 2010Q1

REPORT INFORMATION
  Report Type: 
  Country: None (occurrence: None)
  Receive Date: 20100108
  Receipt Date: 20090930
  Transmission Date: 20100710
  Serious: No
  Sender: FDA-Public Use
  Company Number: A0809753A

PATIENT
  Age: 46 Year
  Sex: Female

DRUGS (20)
  1. TYKERB [Suspect]
     Indication: BREAST CANCER
     Dosage: 1250MG PER DAY
     Route: 048
     Dates: start: 20090827
  2. XELODA [Suspect]
     Indication: BREAST CANCER
     Route: 048
     Dates: start: 20090820
  3. SIMVASTATIN [Concomitant]
  4. KLOR-CON [Concomitant]
  5. FUROSEMIDE [Concomitant]
  6. QUINAPRIL [Concomitant]
  7. GLIPIZIDE [Concomitant]
  8. METFORMIN HCL [Concomitant]
  9. ACTOS [Concomitant]
  10. CALCIUM [Concomitant]
  11. VITAMIN D [Concomitant]
  12. ASPIRIN [Concomitant]
  13. METOLAZONE [Concomitant]
  14. VITAMIN TAB [Concomitant]
  15. IRON SUPPLEMENT [Concomitant]
  16. LEVEMIR [Concomitant]
  17. VITAMIN B-12 [Concomitant]
  18. COMPAZINE [Concomitant]
  19. LORAZEPAM [Concomitant]
  20. DARVOCET-N 100 [Concomitant]

REACTIONS (2)
  - DIARRHOEA [None]
  - DIZZINESS [None]
